FAERS Safety Report 19216594 (Version 1)
Quarter: 2021Q2

REPORT INFORMATION
  Report Type: Spontaneous
  Country: US (occurrence: US)
  Receive Date: 20210505
  Receipt Date: 20210505
  Transmission Date: 20210717
  Serious: No
  Sender: FDA-Public Use
  Company Number: None

PATIENT
  Age: 68 Year
  Sex: Male
  Weight: 71.21 kg

DRUGS (1)
  1. SPIRONOLACTONE (SPIRONOLACTONE 25MG TAB) [Suspect]
     Active Substance: SPIRONOLACTONE
     Route: 048
     Dates: start: 20200221, end: 20200603

REACTIONS (2)
  - Myalgia [None]
  - Gynaecomastia [None]

NARRATIVE: CASE EVENT DATE: 20200603
